FAERS Safety Report 9526624 (Version 1)
Quarter: 2013Q3

REPORT INFORMATION
  Report Type: Spontaneous
  Country: NL (occurrence: NL)
  Receive Date: 20130916
  Receipt Date: 20130916
  Transmission Date: 20140515
  Serious: Yes (Hospitalization, Other)
  Sender: FDA-Public Use
  Company Number: PHHY2013NL099234

PATIENT
  Age: 68 Year
  Sex: Male

DRUGS (9)
  1. TRAZODONE [Suspect]
     Dosage: 50 MG, QD
  2. TRANYLCYPROMINE [Interacting]
     Indication: MAJOR DEPRESSION
     Dosage: 30 MG, BID
  3. DARIFENACIN [Concomitant]
  4. LORAZEPAM [Concomitant]
  5. CARBASALATE CALCIUM [Concomitant]
  6. CALCIUM CARBONATE W/COLECALCIFEROL [Concomitant]
  7. METOPROLOL [Concomitant]
  8. AMLODIPINE [Concomitant]
  9. ISOSORBIDE DINITRATE [Concomitant]

REACTIONS (7)
  - Blood creatinine increased [Recovered/Resolved]
  - Serotonin syndrome [Unknown]
  - Hyperreflexia [Unknown]
  - Clonic convulsion [Unknown]
  - Confusional state [Unknown]
  - Muscle rigidity [Recovered/Resolved]
  - Drug interaction [Unknown]
